FAERS Safety Report 21907022 (Version 2)
Quarter: 2023Q1

REPORT INFORMATION
  Report Type: Spontaneous
  Country: FR (occurrence: FR)
  Receive Date: 20230125
  Receipt Date: 20230203
  Transmission Date: 20230418
  Serious: Yes (Hospitalization)
  Sender: FDA-Public Use
  Company Number: FR-AFSSAPS-PC20222467

PATIENT
  Age: 78 Year
  Sex: Male

DRUGS (13)
  1. OXALIPLATIN [Suspect]
     Active Substance: OXALIPLATIN
     Indication: Adenocarcinoma of colon
     Dosage: C4
     Route: 040
     Dates: start: 20200424, end: 20200424
  2. OXALIPLATIN [Suspect]
     Active Substance: OXALIPLATIN
     Dosage: C1
     Route: 065
     Dates: start: 20200131, end: 20200131
  3. ELIQUIS [Suspect]
     Active Substance: APIXABAN
     Indication: Pulmonary embolism
     Dosage: UNK
     Route: 048
     Dates: start: 20200423, end: 20200521
  4. TREMELIMUMAB [Suspect]
     Active Substance: TREMELIMUMAB
     Indication: Adenocarcinoma of colon
     Dosage: C1
     Route: 040
     Dates: start: 20200131, end: 20200131
  5. TREMELIMUMAB [Suspect]
     Active Substance: TREMELIMUMAB
     Dosage: C4
     Route: 065
     Dates: start: 20200424, end: 20200424
  6. INNOHEP [Suspect]
     Active Substance: TINZAPARIN SODIUM
     Indication: Product used for unknown indication
     Dosage: UNK
     Route: 040
     Dates: start: 202005, end: 202005
  7. DURVALUMAB [Suspect]
     Active Substance: DURVALUMAB
     Indication: Adenocarcinoma of colon
     Dosage: C4
     Route: 040
     Dates: start: 20200424, end: 20200424
  8. DURVALUMAB [Suspect]
     Active Substance: DURVALUMAB
     Dosage: C1
     Route: 065
     Dates: start: 20200131, end: 20200131
  9. DURVALUMAB [Suspect]
     Active Substance: DURVALUMAB
     Dosage: C5
     Route: 065
     Dates: start: 20200507, end: 20200507
  10. FLUOROURACIL [Suspect]
     Active Substance: FLUOROURACIL
     Indication: Adenocarcinoma of colon
     Dosage: C1
     Route: 040
     Dates: start: 20200131, end: 20200131
  11. FLUOROURACIL [Suspect]
     Active Substance: FLUOROURACIL
     Dosage: C4
     Route: 065
     Dates: start: 20200424, end: 20200424
  12. AUGMENTIN [Suspect]
     Active Substance: AMOXICILLIN\CLAVULANATE POTASSIUM
     Indication: Antibiotic therapy
     Dosage: UNK
     Route: 048
     Dates: start: 20200512
  13. AUGMENTIN [Suspect]
     Active Substance: AMOXICILLIN\CLAVULANATE POTASSIUM
     Dosage: UNK
     Route: 048
     Dates: start: 20200423

REACTIONS (1)
  - Drug reaction with eosinophilia and systemic symptoms [Recovered/Resolved]

NARRATIVE: CASE EVENT DATE: 20200524
